FAERS Safety Report 9132583 (Version 1)
Quarter: 2013Q1

REPORT INFORMATION
  Report Type: Spontaneous
  Country: PL (occurrence: PL)
  Receive Date: 20130301
  Receipt Date: 20130301
  Transmission Date: 20140127
  Serious: Yes (Life-Threatening)
  Sender: FDA-Public Use
  Company Number: PL-BAYER-2013-026140

PATIENT
  Age: 81 Year
  Sex: Female
  Weight: 63 kg

DRUGS (1)
  1. GADOVIST [Suspect]
     Indication: NUCLEAR MAGNETIC RESONANCE IMAGING
     Dosage: 12 ML, UNK
     Route: 042
     Dates: start: 20130131, end: 20130131

REACTIONS (8)
  - Asthenia [Recovered/Resolved]
  - Dyspnoea [Recovered/Resolved]
  - Nausea [Recovered/Resolved]
  - Convulsion [Recovered/Resolved]
  - Cyanosis [Recovered/Resolved]
  - Livedo reticularis [Recovered/Resolved]
  - Feeling hot [Recovered/Resolved]
  - Feeling cold [Recovered/Resolved]
